FAERS Safety Report 20863215 (Version 2)
Quarter: 2022Q4

REPORT INFORMATION
  Report Type: Report from Study
  Country: GB (occurrence: GB)
  Receive Date: 20220523
  Receipt Date: 20221214
  Transmission Date: 20230112
  Serious: Yes (Hospitalization, Other)
  Sender: FDA-Public Use
  Company Number: GB-TAKEDA-2022TUS034000

PATIENT
  Age: 51 Year
  Sex: Female

DRUGS (10)
  1. TEDUGLUTIDE [Suspect]
     Active Substance: TEDUGLUTIDE
     Indication: Short-bowel syndrome
     Dosage: 2.6 MILLIGRAM, QD
     Route: 042
     Dates: start: 20130401, end: 20140101
  2. TEDUGLUTIDE [Suspect]
     Active Substance: TEDUGLUTIDE
     Indication: Short-bowel syndrome
     Dosage: 2.6 MILLIGRAM, QD
     Route: 042
     Dates: start: 20130401, end: 20140101
  3. TEDUGLUTIDE [Suspect]
     Active Substance: TEDUGLUTIDE
     Indication: Short-bowel syndrome
     Dosage: 2.6 MILLIGRAM, QD
     Route: 042
     Dates: start: 20130401, end: 20140101
  4. TEDUGLUTIDE [Suspect]
     Active Substance: TEDUGLUTIDE
     Indication: Short-bowel syndrome
     Dosage: 2.6 MILLIGRAM, QD
     Route: 042
     Dates: start: 20130401, end: 20140101
  5. CEFUROXIME [Concomitant]
     Active Substance: CEFUROXIME
     Indication: Sepsis
     Dosage: 1.5 GRAM, TID
     Route: 042
     Dates: start: 20170127, end: 20170202
  6. TAUROLIDINE [Concomitant]
     Active Substance: TAUROLIDINE
     Indication: Prophylaxis
     Dosage: 3 MILLILITER, QD
     Route: 042
     Dates: start: 20160909
  7. ESTRADIOL [Concomitant]
     Active Substance: ESTRADIOL
     Indication: Menopause
     Dosage: 75 MICROGRAM, 2/WEEK
     Route: 062
  8. OMEPRAZOLE [Concomitant]
     Active Substance: OMEPRAZOLE
     Indication: Jejunostomy
     Dosage: 40 MILLIGRAM, QD
     Route: 048
  9. MEROPENEM [Concomitant]
     Active Substance: MEROPENEM
     Indication: Vascular device infection
     Dosage: 500 MILLIGRAM, QID
     Route: 042
     Dates: start: 20200908, end: 20200918
  10. TEICOPLANIN [Concomitant]
     Active Substance: TEICOPLANIN
     Indication: Vascular device infection
     Dosage: 400 MILLIGRAM, QD
     Route: 042
     Dates: start: 20191010, end: 20191012

REACTIONS (1)
  - Vascular device infection [Recovered/Resolved]

NARRATIVE: CASE EVENT DATE: 20200907
